FAERS Safety Report 20626953 (Version 1)
Quarter: 2022Q1

REPORT INFORMATION
  Report Type: Spontaneous
  Country: US (occurrence: None)
  Receive Date: 20220322
  Receipt Date: 20220322
  Transmission Date: 20220424
  Serious: Yes (unspecified)
  Sender: FDA-Public Use
  Company Number: None

PATIENT
  Age: 73 Year
  Sex: Female
  Weight: 95.2 kg

DRUGS (2)
  1. TAXOL [Suspect]
     Active Substance: PACLITAXEL
     Indication: Breast cancer
     Dosage: OTHER FREQUENCY : ONCE;?
     Route: 042
  2. PACLitaxel 6 mg/ml IV vial [Concomitant]
     Dates: start: 20220310, end: 20220310

REACTIONS (3)
  - Flushing [None]
  - Pruritus [None]
  - Infusion related reaction [None]

NARRATIVE: CASE EVENT DATE: 20220310
